FAERS Safety Report 7404383-X (Version None)
Quarter: 2011Q2

REPORT INFORMATION
  Report Type: 
  Country: None (occurrence: None)
  Receive Date: 20110408
  Receipt Date: 20090930
  Transmission Date: 20111010
  Serious: Yes (Death, Hospitalization, Other)
  Sender: FDA-Public Use
  Company Number: US-BAYER-200934528NA

PATIENT
  Age: 62 Year
  Sex: Female
  Weight: 57.143 kg

DRUGS (45)
  1. TRASYLOL [Suspect]
     Indication: MITRAL VALVE REPLACEMENT
     Dosage: 200 ML LOADING DOSE
  2. ATIVAN [Concomitant]
     Dosage: 5 MG, UNK
     Route: 042
     Dates: start: 20040204
  3. LASIX [Concomitant]
     Dosage: 20 MG, UNK
     Route: 048
  4. LEXAPRO [Concomitant]
     Dosage: 20 MG, UNK
     Route: 048
  5. VALIUM [Concomitant]
     Dosage: 10 MG, UNK
     Route: 048
     Dates: start: 20040204, end: 20040204
  6. PAVULON [Concomitant]
     Dosage: 20 MG, UNK
     Route: 042
     Dates: start: 20040205, end: 20040205
  7. SOLU-MEDROL [Concomitant]
     Dosage: 500 MG, UNK
     Route: 042
     Dates: start: 20040205, end: 20040205
  8. ZINACEF [Concomitant]
     Dosage: 1.5 G, UNK
     Route: 042
     Dates: start: 20040205, end: 20040205
  9. INSULIN [INSULIN] [Concomitant]
     Dosage: 10 U, CPB
     Dates: start: 20040205, end: 20040205
  10. LORAZEPAM [Concomitant]
     Dosage: 1 MG, UNK
     Route: 048
  11. XOPENEX [Concomitant]
     Dosage: 1.25 MG, UNK
     Route: 048
  12. METOPROLOL [Concomitant]
     Dosage: 100 MG, UNK
     Route: 042
     Dates: start: 20050204
  13. XANAX [Concomitant]
     Dosage: 0.25 MG, UNK
     Route: 048
  14. HEPARIN [Concomitant]
     Dosage: 35000 U, UNK
     Route: 042
     Dates: start: 20040205, end: 20040205
  15. ASPIRIN [Concomitant]
     Dosage: 325 MG, UNK
     Route: 048
     Dates: start: 20040203
  16. DOPAMINE HCL [Concomitant]
     Dosage: 3 MCG/KG/MIN
     Route: 042
     Dates: start: 20040205, end: 20040205
  17. MANNITOL [Concomitant]
     Dosage: 37.5 G, CPB
     Dates: start: 20040205, end: 20040205
  18. CATAPRES [Concomitant]
     Dosage: 2 MG, UNK
     Route: 048
  19. LEVOTHYROXINE SODIUM [Concomitant]
     Dosage: 75MCG
     Route: 048
  20. EPINEPHRINE [Concomitant]
     Dosage: 1 MG, UNK
     Route: 042
     Dates: start: 20050204
  21. TRASYLOL [Suspect]
     Dosage: 25 ML/HOUR
     Dates: end: 20040205
  22. HEPARIN [Concomitant]
     Dosage: 2500 UNITS BOLUS
     Route: 042
     Dates: start: 20040203, end: 20040203
  23. VANCOMYCIN [Concomitant]
     Dosage: 1 G, UNK
     Route: 042
     Dates: start: 20040205, end: 20040205
  24. DOBUTAMINE HCL [Concomitant]
     Dosage: 250 MG, UNK
     Route: 042
     Dates: start: 20050204
  25. COUMADIN [Concomitant]
     Dosage: 2.5 MG, UNK
     Route: 048
  26. HEPARIN [Concomitant]
     Dosage: 25,000U
     Route: 042
     Dates: start: 20050204
  27. NEO-SYNEPHRINOL [Concomitant]
     Dosage: 100 ?G, UNK
     Route: 042
     Dates: start: 20040205, end: 20040205
  28. TOPROL-XL [Concomitant]
     Dosage: 50 MG, UNK
     Route: 048
  29. VALIUM [Concomitant]
     Indication: ANXIETY
     Dosage: 10 MG, ONCE
     Route: 048
     Dates: start: 20040202, end: 20040202
  30. ATIVAN [Concomitant]
     Dosage: 4 MG, UNK
     Route: 042
     Dates: start: 20040205, end: 20040205
  31. PROTAMINE SULFATE [Concomitant]
     Dosage: 250 MG, UNK
     Route: 042
     Dates: start: 20040205, end: 20040205
  32. SINGULAIR [Concomitant]
     Dosage: 10 MG, UNK
     Route: 048
  33. BENICAR [Concomitant]
     Dosage: 40 MG, UNK
     Route: 048
  34. TRASYLOL [Suspect]
     Indication: CORONARY ARTERY BYPASS
     Dosage: 1 ML, ONCE
     Dates: start: 20040205
  35. ALBUTEROL [Concomitant]
     Dosage: 2 PUFF(S), UNK
     Route: 055
  36. HEPARIN [Concomitant]
     Dosage: 50 MG CPB
     Dates: start: 20040205, end: 20040205
  37. SODIUM BICARBONATE [Concomitant]
     Dosage: 75 MEQ, CPB
     Dates: start: 20040205, end: 20040205
  38. CALCIUM CHLORIDE [Concomitant]
     Dosage: 3 G, CPB
  39. DIGOXIN [Concomitant]
     Dosage: 250 ?G, UNK
     Route: 048
  40. COUMADIN [Concomitant]
     Indication: ATRIAL FIBRILLATION
     Dosage: 2 MG, UNK
     Route: 048
     Dates: start: 20031212
  41. HEPARIN [Concomitant]
     Dosage: 1000 UNITS/HR
     Route: 042
     Dates: start: 20040203
  42. FENTANYL [Concomitant]
     Dosage: 20 CC
     Route: 042
     Dates: start: 20040205, end: 20040205
  43. EPHEDRINE [Concomitant]
     Dosage: 20 MG, UNK
     Route: 042
     Dates: start: 20040205, end: 20040205
  44. DOPAMINE HCL [Concomitant]
     Dosage: 250 MG, UNK
     Route: 042
     Dates: start: 20050204
  45. AMIODARONE [Concomitant]
     Dosage: 200 MG, UNK
     Route: 048

REACTIONS (12)
  - EMOTIONAL DISTRESS [None]
  - STRESS [None]
  - UNEVALUABLE EVENT [None]
  - RENAL FAILURE [None]
  - INJURY [None]
  - RENAL INJURY [None]
  - MULTI-ORGAN FAILURE [None]
  - FEAR [None]
  - PAIN [None]
  - ANXIETY [None]
  - DEATH [None]
  - RENAL IMPAIRMENT [None]
